FAERS Safety Report 5521587-1 (Version None)
Quarter: 2007Q4

REPORT INFORMATION
  Report Type: 
  Country: None (occurrence: None)
  Receive Date: 20071115
  Receipt Date: 20071102
  Transmission Date: 20080405
  Serious: Yes (Hospitalization)
  Sender: FDA-Public Use
  Company Number: 310001L07POL

PATIENT
  Age: 32 Year
  Sex: Female

DRUGS (8)
  1. GONAL-F [Suspect]
     Dosage: 1350 IU
  2. MENOTROPINS [Suspect]
     Dosage: 675 IU
  3. PREGNYL [Suspect]
     Dosage: 10000 IU
  4. PROGESTERONE [Suspect]
     Dosage: VAGINAL
     Route: 067
  5. ESTROGENS, COMBINATIONS WITH OTHER DRUGS [Concomitant]
  6. TRIPTORELIN [Concomitant]
  7. PREDNISONE TAB [Concomitant]
  8. ACETYLSALICYLIC ACID SRT [Concomitant]

REACTIONS (10)
  - BLOOD PRESSURE INCREASED [None]
  - HAEMATOCRIT DECREASED [None]
  - HAEMOGLOBIN DECREASED [None]
  - HAEMOPHILUS INFECTION [None]
  - OVARIAN HYPERSTIMULATION SYNDROME [None]
  - PALPITATIONS [None]
  - PROTEIN TOTAL DECREASED [None]
  - RESPIRATORY TRACT INFECTION BACTERIAL [None]
  - TACHYCARDIA [None]
  - WHITE BLOOD CELL COUNT INCREASED [None]
